FAERS Safety Report 16478803 (Version 1)
Quarter: 2019Q2

REPORT INFORMATION
  Report Type: Spontaneous
  Country: DE (occurrence: DE)
  Receive Date: 20190626
  Receipt Date: 20190626
  Transmission Date: 20190711
  Serious: Yes (Other)
  Sender: FDA-Public Use
  Company Number: DE-TEVA-2019-DE-1046778

PATIENT
  Age: 59 Year
  Sex: Female

DRUGS (5)
  1. OLANZAPIN [Suspect]
     Active Substance: OLANZAPINE
     Indication: SCHIZOPHRENIA
     Route: 048
     Dates: start: 2000, end: 2006
  2. OLANZAPIN [Suspect]
     Active Substance: OLANZAPINE
     Indication: SCHIZOPHRENIA
     Route: 048
     Dates: start: 2006, end: 201301
  3. OLANZAPIN [Suspect]
     Active Substance: OLANZAPINE
     Route: 048
     Dates: start: 201302, end: 201901
  4. OLANZAPIN [Suspect]
     Active Substance: OLANZAPINE
     Indication: SCHIZOAFFECTIVE DISORDER
     Route: 048
     Dates: start: 2000, end: 2006
  5. ZYPREXA [Suspect]
     Active Substance: OLANZAPINE
     Dosage: 0.5 MILLIGRAM FOR EVERY 1 DAY
     Dates: start: 2000, end: 201710

REACTIONS (3)
  - Diabetes mellitus [Not Recovered/Not Resolved]
  - Bladder catheter permanent [Not Recovered/Not Resolved]
  - Dysuria [Not Recovered/Not Resolved]

NARRATIVE: CASE EVENT DATE: 2013
